FAERS Safety Report 17452153 (Version 1)
Quarter: 2020Q1

REPORT INFORMATION
  Report Type: Report from Study
  Country: IN (occurrence: IN)
  Receive Date: 20200224
  Receipt Date: 20200224
  Transmission Date: 20200409
  Serious: Yes (Death)
  Sender: FDA-Public Use
  Company Number: IN-TAKEDA-2020TUS011225

PATIENT
  Age: 18 Year
  Sex: Male

DRUGS (2)
  1. BORTEZOMIB. [Suspect]
     Active Substance: BORTEZOMIB
     Indication: ACUTE PROMYELOCYTIC LEUKAEMIA
     Dosage: 1.4 MILLIGRAM/SQ. METER
     Route: 058
  2. ARSENIC TRIOXIDE. [Suspect]
     Active Substance: ARSENIC TRIOXIDE
     Indication: ACUTE PROMYELOCYTIC LEUKAEMIA
     Dosage: UNK UNK, QD
     Route: 042

REACTIONS (2)
  - Disease progression [Fatal]
  - Oropharyngeal pain [Unknown]
